FAERS Safety Report 9511975 (Version 2)
Quarter: 2013Q4

REPORT INFORMATION
  Report Type: Report from Study
  Country: BR (occurrence: BR)
  Receive Date: 20130910
  Receipt Date: 20131004
  Transmission Date: 20140711
  Serious: Yes (Other)
  Sender: FDA-Public Use
  Company Number: PHHY2013BR098515

PATIENT
  Sex: Female

DRUGS (2)
  1. DIOVAN [Suspect]
     Indication: HYPERTENSION
     Dosage: 1 DF, (80 MG) DAILY
     Route: 048
     Dates: start: 201302, end: 201308
  2. DIOVAN [Suspect]
     Dosage: 1 DF, (320 MG) DAILY
     Route: 048

REACTIONS (2)
  - Intraductal papilloma of breast [Recovered/Resolved]
  - Benign breast neoplasm [Unknown]
